FAERS Safety Report 6983044-5 (Version None)
Quarter: 2010Q3

REPORT INFORMATION
  Report Type: 
  Country: None (occurrence: None)
  Receive Date: 20100909
  Receipt Date: 20100823
  Transmission Date: 20110219
  Serious: Yes (Other)
  Sender: FDA-Public Use
  Company Number: 2010P1001027

PATIENT
  Age: 7 Year
  Sex: Male
  Weight: 23.587 kg

DRUGS (2)
  1. CETIRIZINE HCL [Suspect]
     Indication: MULTIPLE ALLERGIES
     Dosage: 1 TEASPOON; X1; PO
     Route: 048
     Dates: start: 20100819, end: 20100819
  2. MULTI-VITAMIN [Concomitant]

REACTIONS (16)
  - CHEILITIS [None]
  - DIARRHOEA [None]
  - ECZEMA [None]
  - EYE PRURITUS [None]
  - FAECES DISCOLOURED [None]
  - IRRITABILITY [None]
  - LIP SWELLING [None]
  - PRODUCT LABEL ISSUE [None]
  - PSYCHOMOTOR HYPERACTIVITY [None]
  - RASH GENERALISED [None]
  - RASH MACULAR [None]
  - REACTION TO DRUG EXCIPIENTS [None]
  - RETCHING [None]
  - RHINORRHOEA [None]
  - SNEEZING [None]
  - THROAT IRRITATION [None]
